FAERS Safety Report 25114846 (Version 2)
Quarter: 2025Q1

REPORT INFORMATION
  Report Type: Spontaneous
  Country: US (occurrence: US)
  Receive Date: 20250324
  Receipt Date: 20250328
  Transmission Date: 20250409
  Serious: Yes (Hospitalization)
  Sender: ABBVIE
  Company Number: US-ABBVIE-6191017

PATIENT
  Sex: Male

DRUGS (1)
  1. CARAFATE [Suspect]
     Active Substance: SUCRALFATE
     Indication: Erosive oesophagitis
     Route: 048

REACTIONS (4)
  - Oesophageal pain [Unknown]
  - Hiccups [Unknown]
  - Erosive oesophagitis [Unknown]
  - Off label use [Unknown]
